FAERS Safety Report 22601799 (Version 1)
Quarter: 2023Q2

REPORT INFORMATION
  Report Type: Spontaneous
  Country: BE (occurrence: BE)
  Receive Date: 20230614
  Receipt Date: 20230614
  Transmission Date: 20230721
  Serious: Yes (Other)
  Sender: FDA-Public Use
  Company Number: BE-SAMSUNG BIOEPIS-SB-2023-15596

PATIENT
  Age: 38 Year
  Sex: Male
  Weight: 117 kg

DRUGS (13)
  1. ADALIMUMAB [Suspect]
     Active Substance: ADALIMUMAB
     Indication: Hidradenitis
     Route: 058
  2. ADALIMUMAB [Suspect]
     Active Substance: ADALIMUMAB
     Indication: Psoriasis
  3. OLANZAPINE [Concomitant]
     Active Substance: OLANZAPINE
     Indication: Schizophrenia
     Dosage: UNKNOWN
     Route: 065
  4. ZUCLOPENTHIXOL [Concomitant]
     Active Substance: ZUCLOPENTHIXOL
     Indication: Schizophrenia
     Dosage: UNKNOWN
     Route: 065
  5. CORTICOSTEROID NOS [Concomitant]
     Active Substance: CORTICOSTEROID NOS
     Indication: Psoriasis
     Dosage: UNKNOWN
     Route: 061
  6. PSORALEN [Concomitant]
     Active Substance: PSORALEN
     Indication: Psoriasis
     Dosage: UNKNOWN
     Route: 065
  7. LYMECYCLINE [Concomitant]
     Active Substance: LYMECYCLINE
     Indication: Hidradenitis
     Dosage: UNKNOWN
     Route: 048
  8. CLINDAMYCIN [Concomitant]
     Active Substance: CLINDAMYCIN
     Indication: Hidradenitis
     Dosage: UNKNOWN
     Route: 065
  9. RIFAMPIN [Concomitant]
     Active Substance: RIFAMPIN
     Indication: Hidradenitis
     Dosage: UNKNOWN
     Route: 065
  10. METHOTREXATE [Concomitant]
     Active Substance: METHOTREXATE
     Indication: Hidradenitis
     Route: 065
     Dates: start: 201808
  11. METHOTREXATE [Concomitant]
     Active Substance: METHOTREXATE
     Indication: Psoriasis
  12. SECUKINUMAB [Concomitant]
     Active Substance: SECUKINUMAB
     Indication: Hidradenitis
     Dosage: FOR 5 WEEKS (INDUCTION?PHASE)
     Route: 058
     Dates: start: 201810
  13. SECUKINUMAB [Concomitant]
     Active Substance: SECUKINUMAB
     Indication: Psoriasis
     Route: 058

REACTIONS (2)
  - Hidradenitis [Recovering/Resolving]
  - Treatment failure [Unknown]
